FAERS Safety Report 5371548-0 (Version None)
Quarter: 2007Q2

REPORT INFORMATION
  Report Type: 
  Country: None (occurrence: None)
  Receive Date: 20070625
  Receipt Date: 20070625
  Transmission Date: 20071010
  Serious: No
  Sender: FDA-Public Use
  Company Number: None

PATIENT
  Age: 66 Year
  Sex: Male

DRUGS (1)
  1. MINOXIDIL [Suspect]
     Dosage: 5MG BID PO
     Route: 048
     Dates: start: 20070404, end: 20070421

REACTIONS (1)
  - GENERALISED OEDEMA [None]
